FAERS Safety Report 25305783 (Version 2)
Quarter: 2025Q3

REPORT INFORMATION
  Report Type: Spontaneous
  Country: US (occurrence: US)
  Receive Date: 20250513
  Receipt Date: 20250809
  Transmission Date: 20251020
  Serious: Yes (Other)
  Sender: ALEXION PHARMACEUTICALS
  Company Number: US-AstraZeneca-CH-00866828A

PATIENT

DRUGS (1)
  1. WAINUA [Suspect]
     Active Substance: EPLONTERSEN
     Route: 065

REACTIONS (1)
  - Neuropathy peripheral [Unknown]
